FAERS Safety Report 4409935-7 (Version None)
Quarter: 2004Q3

REPORT INFORMATION
  Report Type: 
  Country: None (occurrence: None)
  Receive Date: 20040726
  Receipt Date: 20040713
  Transmission Date: 20050211
  Serious: Yes (Death)
  Sender: FDA-Public Use
  Company Number: 04P-163-0267056-00

PATIENT
  Age: 35 Year
  Sex: Female

DRUGS (5)
  1. VALPROIC ACID [Suspect]
     Indication: BIPOLAR DISORDER
     Dosage: 500 MG MORNING, 1750 BEDTIME;  1000 MG, 2 IN 1 D
  2. QUETIAPINE [Suspect]
     Indication: BIPOLAR DISORDER
     Dosage: 100MG MORNING, 300MG BEDTIME
  3. HALOPERIDOL [Concomitant]
  4. HALOPERIDOL DECANOATE [Concomitant]
  5. PARACETAMOL [Concomitant]

REACTIONS (4)
  - DEHYDRATION [None]
  - DRUG LEVEL ABOVE THERAPEUTIC [None]
  - PANCREATITIS ACUTE [None]
  - SUDDEN DEATH [None]
